FAERS Safety Report 19499619 (Version 1)
Quarter: 2021Q3

REPORT INFORMATION
  Report Type: Spontaneous
  Country: CA (occurrence: CA)
  Receive Date: 20210707
  Receipt Date: 20210707
  Transmission Date: 20211014
  Serious: Yes (Hospitalization, Other)
  Sender: FDA-Public Use
  Company Number: CA-AMICUS-AMI_788

PATIENT
  Age: 58 Year
  Sex: Male
  Weight: 68.03 kg

DRUGS (15)
  1. GALAFOLD [Suspect]
     Active Substance: MIGALASTAT HYDROCHLORIDE
     Indication: FABRY^S DISEASE
     Dosage: 123 MILLIGRAM, QOD
     Route: 048
     Dates: start: 20180330
  2. NITROGLYCERIN. [Concomitant]
     Active Substance: NITROGLYCERIN
     Indication: PRODUCT USED FOR UNKNOWN INDICATION
     Dosage: 0.4 MG (1 TAB), Q5MIN IF NEEDED
     Route: 060
  3. MELATONIN [Concomitant]
     Active Substance: MELATONIN
     Indication: PRODUCT USED FOR UNKNOWN INDICATION
     Dosage: 5 MG, QHS IF NEEDED
     Route: 048
  4. TYLENOL [Concomitant]
     Active Substance: ACETAMINOPHEN
     Indication: MIGRAINE
  5. COLACE [Concomitant]
     Active Substance: DOCUSATE SODIUM
     Indication: FAECES SOFT
     Dosage: 100 MILLIGRAM, BID
     Route: 048
  6. MYLANTA [Concomitant]
     Active Substance: ALUMINUM HYDROXIDE\DIMETHICONE\MAGNESIUM HYDROXIDE
     Indication: DYSPEPSIA
     Dosage: 30 MILLILITER, Q4H IF NEEDED
     Route: 048
  7. PERCOCET                           /00446701/ [Concomitant]
     Active Substance: ACETAMINOPHEN\OXYCODONE HYDROCHLORIDE\OXYCODONE TEREPHTHALATE
     Indication: PAIN
     Dosage: 1 TAB, Q6H IF NEEDED
     Route: 048
  8. ASPIRIN                            /00002701/ [Concomitant]
     Active Substance: ASPIRIN
     Indication: PRODUCT USED FOR UNKNOWN INDICATION
     Dosage: 81 MILLIGRAM, QD
     Route: 048
     Dates: start: 201706, end: 20180502
  9. APIXABAN [Concomitant]
     Active Substance: APIXABAN
     Indication: PRODUCT USED FOR UNKNOWN INDICATION
     Dosage: 5 MILLIGRAM, BID
     Route: 065
  10. ZOFRAN [Concomitant]
     Active Substance: ONDANSETRON HYDROCHLORIDE
     Indication: PRODUCT USED FOR UNKNOWN INDICATION
     Dosage: 4 MG = 2 ML IF NEEDED, Q4H
     Route: 042
  11. COVERSYL                           /00790702/ [Concomitant]
     Active Substance: PERINDOPRIL
     Indication: PRODUCT USED FOR UNKNOWN INDICATION
     Dosage: 2 MILLIGRAM, QD
     Route: 065
     Dates: start: 201801
  12. XANAX [Concomitant]
     Active Substance: ALPRAZOLAM
     Indication: ANXIETY
     Dosage: 0.25 MG (1 TAB), Q6H, IF NEEDED
     Route: 048
  13. TYLENOL [Concomitant]
     Active Substance: ACETAMINOPHEN
     Indication: PAIN
     Dosage: 650 MG (2 TABS), Q4H IF NEEDED
     Route: 048
  14. ESOMEPRAZOLE. [Concomitant]
     Active Substance: ESOMEPRAZOLE MAGNESIUM
     Indication: PRODUCT USED FOR UNKNOWN INDICATION
     Dosage: 400 MILLIGRAM, QD
     Route: 065
  15. METOPROLOL. [Concomitant]
     Active Substance: METOPROLOL
     Indication: PRODUCT USED FOR UNKNOWN INDICATION
     Dosage: 12.5 MILLIGRAM, BID
     Route: 065

REACTIONS (23)
  - Back pain [Recovering/Resolving]
  - Fatigue [Recovering/Resolving]
  - Cardiomegaly [Recovering/Resolving]
  - Acute myocardial infarction [Unknown]
  - Chest pain [Recovered/Resolved]
  - Asthenia [Recovering/Resolving]
  - Pre-existing condition improved [Unknown]
  - Migraine [Recovering/Resolving]
  - Chest pain [Recovered/Resolved]
  - Paraesthesia [Recovering/Resolving]
  - Dizziness [Recovered/Resolved]
  - Poor peripheral circulation [Recovered/Resolved]
  - Weight decreased [Recovering/Resolving]
  - Atrial fibrillation [Recovered/Resolved]
  - Sinus bradycardia [Recovering/Resolving]
  - Hypotension [Recovered/Resolved]
  - Temperature intolerance [Recovering/Resolving]
  - Feeling of body temperature change [Recovering/Resolving]
  - Pain in extremity [Recovered/Resolved]
  - Lethargy [Recovered/Resolved]
  - Hypohidrosis [Recovering/Resolving]
  - Abdominal discomfort [Recovered/Resolved]
  - Cardiac murmur [Unknown]

NARRATIVE: CASE EVENT DATE: 2018
